FAERS Safety Report 11723437 (Version 2)
Quarter: 2015Q4

REPORT INFORMATION
  Report Type: Spontaneous
  Country: US (occurrence: US)
  Receive Date: 20151111
  Receipt Date: 20151123
  Transmission Date: 20160304
  Serious: Yes (Other)
  Sender: FDA-Public Use
  Company Number: US-ACTELION-A-NJ2015-126875

PATIENT
  Age: 2 Year
  Sex: Male

DRUGS (1)
  1. TRACLEER [Suspect]
     Active Substance: BOSENTAN
     Indication: PULMONARY ARTERIAL HYPERTENSION
     Dosage: 16 MG, UNK
     Route: 048
     Dates: start: 20150818

REACTIONS (5)
  - Aspartate aminotransferase increased [Not Recovered/Not Resolved]
  - Moaning [Not Recovered/Not Resolved]
  - Liver function test abnormal [Not Recovered/Not Resolved]
  - Aggression [Not Recovered/Not Resolved]
  - Human bite [Not Recovered/Not Resolved]
